FAERS Safety Report 6301845-3 (Version None)
Quarter: 2009Q3

REPORT INFORMATION
  Report Type: 
  Country: None (occurrence: None)
  Receive Date: 20090807
  Receipt Date: 20090728
  Transmission Date: 20100115
  Serious: Yes (Hospitalization)
  Sender: FDA-Public Use
  Company Number: CA-ABBOTT-09P-028-0589355-00

PATIENT
  Sex: Male

DRUGS (1)
  1. HUMIRA [Suspect]
     Indication: CROHN'S DISEASE
     Route: 058
     Dates: start: 20080717

REACTIONS (5)
  - ADVERSE DRUG REACTION [None]
  - BACTERIAL INFECTION [None]
  - DEHYDRATION [None]
  - GENERAL PHYSICAL CONDITION ABNORMAL [None]
  - RASH PUSTULAR [None]
